FAERS Safety Report 4682347-7 (Version None)
Quarter: 2005Q2

REPORT INFORMATION
  Report Type: 
  Country: None (occurrence: None)
  Receive Date: 20050606
  Receipt Date: 20050413
  Transmission Date: 20051028
  Serious: Yes (Other)
  Sender: FDA-Public Use
  Company Number: 200511160JP

PATIENT
  Age: 40 Year
  Sex: Male
  Weight: 72 kg

DRUGS (3)
  1. ALLEGRA [Suspect]
     Indication: RHINITIS ALLERGIC
     Route: 048
     Dates: start: 20050309, end: 20050320
  2. CLARITIN [Suspect]
     Indication: RHINITIS ALLERGIC
     Route: 048
     Dates: start: 20050321, end: 20050330
  3. LIVOSTIN [Concomitant]
     Indication: RHINITIS ALLERGIC
     Route: 047
     Dates: start: 20050309, end: 20050330

REACTIONS (3)
  - CONVULSION [None]
  - DRUG EFFECT DECREASED [None]
  - LOSS OF CONSCIOUSNESS [None]
